FAERS Safety Report 17638184 (Version 1)
Quarter: 2020Q2

REPORT INFORMATION
  Report Type: Spontaneous
  Country: US (occurrence: US)
  Receive Date: 20200407
  Receipt Date: 20200407
  Transmission Date: 20200713
  Serious: Yes (Hospitalization)
  Sender: FDA-Public Use
  Company Number: None

PATIENT
  Age: 48 Year
  Sex: Male
  Weight: 89.4 kg

DRUGS (4)
  1. LORATADINE. [Concomitant]
     Active Substance: LORATADINE
  2. RITUXIMAB (MOAB C2B8 ANTI CD20, CHIMERIC)(687451) [Suspect]
     Active Substance: RITUXIMAB
     Dates: end: 20190417
  3. LEVOFLOXACIN. [Concomitant]
     Active Substance: LEVOFLOXACIN
  4. VALACYCLOVIR [Concomitant]
     Active Substance: VALACYCLOVIR HYDROCHLORIDE

REACTIONS (4)
  - Inflammation [None]
  - Anal fistula infection [None]
  - Febrile neutropenia [None]
  - Immunodeficiency [None]

NARRATIVE: CASE EVENT DATE: 20191101
